FAERS Safety Report 6299405-6 (Version None)
Quarter: 2009Q3

REPORT INFORMATION
  Report Type: 
  Country: None (occurrence: None)
  Receive Date: 20090803
  Receipt Date: 20090720
  Transmission Date: 20100115
  Serious: Yes (Death, Other)
  Sender: FDA-Public Use
  Company Number: MC200900256

PATIENT

DRUGS (2)
  1. BIVALIRUDIN [Suspect]
     Indication: ANGIOPLASTY
     Dosage: 0.75 MG/KG, BOLUS, INTRAVENOUS 1.75 MG/KG, HR, INTRAVENOUS
     Route: 042
  2. ASPIRIN [Concomitant]

REACTIONS (10)
  - ACUTE MYOCARDIAL INFARCTION [None]
  - ARTERIOVENOUS FISTULA [None]
  - CARDIAC DEATH [None]
  - CARDIAC DISORDER [None]
  - GASTROINTESTINAL HAEMORRHAGE [None]
  - HAEMATOMA [None]
  - HAEMORRHAGE [None]
  - ISCHAEMIC STROKE [None]
  - VASCULAR PROCEDURE COMPLICATION [None]
  - VASCULAR PSEUDOANEURYSM [None]
